FAERS Safety Report 11117502 (Version 3)
Quarter: 2015Q3

REPORT INFORMATION
  Report Type: Spontaneous
  Country: DE (occurrence: DE)
  Receive Date: 20150516
  Receipt Date: 20150706
  Transmission Date: 20151125
  Serious: Yes (Other)
  Sender: FDA-Public Use
  Company Number: PHHY2015DE038194

PATIENT
  Sex: Male
  Weight: 100 kg

DRUGS (3)
  1. SATIVEX [Concomitant]
     Active Substance: NABIXIMOLS
     Indication: MUSCLE SPASTICITY
     Dosage: 8 PUFFS, UKN
     Route: 065
     Dates: start: 20150119
  2. GILENYA [Suspect]
     Active Substance: FINGOLIMOD HYDROCHLORIDE
     Indication: MULTIPLE SCLEROSIS
     Dosage: 0.5 MG, QD
     Route: 048
     Dates: start: 20140606, end: 20150330
  3. VENLAFAXINE [Concomitant]
     Active Substance: VENLAFAXINE HYDROCHLORIDE
     Indication: DEPRESSION
     Dosage: 75 MG, TID (TWICE IN THE MORNING, ONCE IN THE EVENING)
     Route: 065
     Dates: start: 20150326

REACTIONS (15)
  - Transaminases increased [Recovered/Resolved]
  - Aspartate aminotransferase increased [Recovered/Resolved]
  - Neutrophil percentage increased [Unknown]
  - Epstein-Barr virus test positive [Unknown]
  - Monocyte count decreased [Unknown]
  - Hepatic steatosis [Unknown]
  - Central nervous system lesion [Unknown]
  - Gamma-glutamyltransferase increased [Recovered/Resolved]
  - Epstein-Barr virus antibody positive [Unknown]
  - Hepatomegaly [Unknown]
  - Blood triglycerides increased [Unknown]
  - Alanine aminotransferase increased [Recovered/Resolved]
  - Serum ferritin increased [Not Recovered/Not Resolved]
  - T-lymphocyte count increased [Unknown]
  - CD4/CD8 ratio decreased [Unknown]

NARRATIVE: CASE EVENT DATE: 20150319
